FAERS Safety Report 9533057 (Version 1)
Quarter: 2013Q3

REPORT INFORMATION
  Report Type: Spontaneous
  Country: US (occurrence: None)
  Receive Date: 20130916
  Receipt Date: 20130916
  Transmission Date: 20140515
  Serious: Yes (Hospitalization, Other)
  Sender: FDA-Public Use
  Company Number: 2013P1019082

PATIENT
  Age: 16 Year
  Sex: Male
  Weight: 70.31 kg

DRUGS (2)
  1. OXTELLAR XR [Suspect]
     Indication: CONVULSION
     Route: 048
     Dates: start: 201308, end: 201308
  2. SERTRALINE [Concomitant]

REACTIONS (2)
  - Convulsion [None]
  - Grand mal convulsion [None]
